FAERS Safety Report 4689261-1 (Version None)
Quarter: 2005Q2

REPORT INFORMATION
  Report Type: 
  Country: None (occurrence: None)
  Receive Date: 20050613
  Receipt Date: 20040125
  Transmission Date: 20051028
  Serious: Yes (Hospitalization)
  Sender: FDA-Public Use
  Company Number: US-MERCK-0412USA00873

PATIENT
  Age: 41 Year
  Sex: Female

DRUGS (10)
  1. VIOXX [Suspect]
     Indication: ARTHRITIS
     Route: 048
  2. FOSAMAX [Concomitant]
     Route: 048
  3. SINGULAIR [Concomitant]
     Route: 048
  4. PAMELOR [Concomitant]
     Route: 065
  5. VALIUM [Concomitant]
     Route: 065
  6. PERCOCET [Concomitant]
     Route: 065
  7. FLONASE [Concomitant]
     Route: 065
  8. PREMARIN [Concomitant]
     Route: 065
  9. ALLEGRA [Concomitant]
     Route: 065
  10. PLAVIX [Concomitant]
     Route: 065

REACTIONS (10)
  - BACK PAIN [None]
  - CHEST PAIN [None]
  - CYSTITIS [None]
  - EAR PAIN [None]
  - ELECTROCARDIOGRAM ABNORMAL [None]
  - GROIN PAIN [None]
  - HEADACHE [None]
  - NECK PAIN [None]
  - SOMNOLENCE [None]
  - URINE ODOUR ABNORMAL [None]
